FAERS Safety Report 8455570-3 (Version None)
Quarter: 2012Q2

REPORT INFORMATION
  Report Type: 
  Country: None (occurrence: None)
  Receive Date: 20120621
  Receipt Date: 20120615
  Transmission Date: 20120825
  Serious: Yes (Other)
  Sender: FDA-Public Use
  Company Number: US-PFIZER INC-2012105121

PATIENT
  Sex: Male

DRUGS (2)
  1. NORVASC [Suspect]
     Dosage: UNK
  2. NEURONTIN [Suspect]
     Dosage: UNK

REACTIONS (4)
  - TREMOR [None]
  - FALL [None]
  - NEUROPATHY PERIPHERAL [None]
  - ASTHENIA [None]
